FAERS Safety Report 5670609-6 (Version None)
Quarter: 2008Q1

REPORT INFORMATION
  Report Type: 
  Country: None (occurrence: None)
  Receive Date: 20080314
  Receipt Date: 20080314
  Transmission Date: 20080703
  Serious: Yes (Other)
  Sender: FDA-Public Use
  Company Number: None

PATIENT
  Age: 26 Year
  Sex: Male
  Weight: 105.2345 kg

DRUGS (1)
  1. TAMIFLU [Suspect]
     Indication: INFLUENZA IMMUNISATION
     Dosage: 75 DAILY PO
     Route: 048
     Dates: start: 20080304, end: 20080308

REACTIONS (6)
  - DELIRIUM [None]
  - DISORIENTATION [None]
  - GAIT DISTURBANCE [None]
  - HEADACHE [None]
  - TREMOR [None]
  - VERTIGO [None]
